FAERS Safety Report 19407098 (Version 2)
Quarter: 2021Q2

REPORT INFORMATION
  Report Type: Spontaneous
  Country: US (occurrence: US)
  Receive Date: 20210611
  Receipt Date: 20210611
  Transmission Date: 20210717
  Serious: No
  Sender: FDA-Public Use
  Company Number: US-GALDERMA-US2020045063

PATIENT
  Age: 59 Year
  Sex: Female

DRUGS (2)
  1. METRONIDAZOLE GEL, 1% [Suspect]
     Active Substance: METRONIDAZOLE
     Indication: PAPULOPUSTULAR ROSACEA
     Dosage: 1%
     Route: 061
     Dates: start: 202009
  2. METRONIDAZOLE GEL, 1% [Suspect]
     Active Substance: METRONIDAZOLE
     Dosage: 1%
     Route: 061
     Dates: end: 202010

REACTIONS (3)
  - Intentional product misuse [Recovered/Resolved]
  - Product use issue [Recovered/Resolved]
  - Drug ineffective [Not Recovered/Not Resolved]

NARRATIVE: CASE EVENT DATE: 202009
